FAERS Safety Report 10463443 (Version 1)
Quarter: 2014Q3

REPORT INFORMATION
  Report Type: Spontaneous
  Country: US (occurrence: None)
  Receive Date: 20140917
  Receipt Date: 20140917
  Transmission Date: 20150326
  Serious: No
  Sender: FDA-Public Use
  Company Number: US-LHC-2014079

PATIENT
  Age: 53 Year
  Sex: Male

DRUGS (1)
  1. OXYGEN (GENERIC) (OXYGEN) (GAS FOR INHALATION) (VERUM) [Suspect]
     Active Substance: OXYGEN
     Indication: CHRONIC OBSTRUCTIVE PULMONARY DISEASE
     Dosage: SUPPLEMENTAL HOME OXYGEN, INHALATION

REACTIONS (3)
  - Burns first degree [None]
  - Injury [None]
  - Thermal burn [None]
